FAERS Safety Report 9383184 (Version 1)
Quarter: 2013Q3

REPORT INFORMATION
  Report Type: Spontaneous
  Country: US (occurrence: US)
  Receive Date: 20130704
  Receipt Date: 20130704
  Transmission Date: 20140515
  Serious: No
  Sender: FDA-Public Use
  Company Number: US-009507513-1306USA011816

PATIENT
  Age: 69 Year
  Sex: Male

DRUGS (1)
  1. INTEGRILIN [Suspect]

REACTIONS (1)
  - Haemorrhage [Unknown]
